FAERS Safety Report 8860660 (Version 1)
Quarter: 2012Q4

REPORT INFORMATION
  Report Type: 
  Country: US (occurrence: US)
  Receive Date: 20121025
  Receipt Date: 20121025
  Transmission Date: 20130627
  Serious: No
  Sender: FDA-Public Use
  Company Number: US-ASTRAZENECA-2012SE16501

PATIENT
  Age: 67 Year
  Sex: Female

DRUGS (16)
  1. LISINOPRIL [Suspect]
     Route: 048
  2. CRESTOR [Suspect]
     Route: 048
  3. SPIRONOLACTONE [Concomitant]
  4. CRANBERRY [Concomitant]
  5. METFORMIN HCL [Concomitant]
  6. MULTIVITAMINS [Concomitant]
  7. MINERALS [Concomitant]
  8. COUMADIN [Concomitant]
  9. WARFARIN SODIUM [Concomitant]
  10. DIGOXIN [Concomitant]
  11. ASPIRIN [Concomitant]
  12. NITROGLYCERIN [Concomitant]
  13. PLAVIX [Concomitant]
  14. HYDROCHLOROTHIAZIDE [Concomitant]
  15. ECOTRIN [Concomitant]
  16. IBUPROFEN [Concomitant]

REACTIONS (1)
  - Weight decreased [Unknown]
